APPROVED DRUG PRODUCT: VIRAMUNE XR
Active Ingredient: NEVIRAPINE
Strength: 100MG
Dosage Form/Route: TABLET, EXTENDED RELEASE;ORAL
Application: N201152 | Product #002
Applicant: BOEHRINGER INGELHEIM PHARMACEUTICALS INC
Approved: Nov 8, 2012 | RLD: Yes | RS: No | Type: DISCN